FAERS Safety Report 6208765-3 (Version None)
Quarter: 2009Q2

REPORT INFORMATION
  Report Type: 
  Country: None (occurrence: None)
  Receive Date: 20090529
  Receipt Date: 20090527
  Transmission Date: 20091009
  Serious: Yes (Death)
  Sender: FDA-Public Use
  Company Number: FR-BRISTOL-MYERS SQUIBB COMPANY-14639447

PATIENT
  Age: 91 Year
  Sex: Female
  Weight: 60 kg

DRUGS (13)
  1. APROVEL TABS 150 MG [Suspect]
     Dates: start: 20090507, end: 20090507
  2. RILUTEK [Suspect]
     Dosage: 2TABS
     Dates: start: 20090507, end: 20090507
  3. INIPOMP [Suspect]
     Dosage: 1 TABLET
     Dates: start: 20090507, end: 20090507
  4. DISCOTRINE [Suspect]
     Dosage: 5MG/24H PATCH
     Dates: start: 20090507, end: 20090507
  5. SERESTA [Suspect]
     Dates: start: 20090507, end: 20090507
  6. MOTILIUM [Suspect]
     Dates: start: 20090507, end: 20090507
  7. DOLIPRANE [Concomitant]
  8. ACUPAN [Concomitant]
  9. LOVENOX [Concomitant]
     Dosage: 1DF=4000 IU/0.4ML
     Dates: start: 20090201, end: 20090507
  10. LANTUS [Concomitant]
     Dates: end: 20090507
  11. SECTRAL [Concomitant]
     Dates: end: 20090506
  12. LASIX [Concomitant]
     Dates: end: 20090506
  13. FORLAX [Concomitant]

REACTIONS (3)
  - CARDIO-RESPIRATORY ARREST [None]
  - MEDICATION ERROR [None]
  - SOMNOLENCE [None]
